FAERS Safety Report 4322923-4 (Version None)
Quarter: 2004Q1

REPORT INFORMATION
  Report Type: 
  Country: None (occurrence: None)
  Receive Date: 20040322
  Receipt Date: 20031211
  Transmission Date: 20041129
  Serious: Yes (Other)
  Sender: FDA-Public Use
  Company Number: PHEH2003US11338

PATIENT
  Age: 51 Year
  Sex: Male

DRUGS (7)
  1. ZOMETA [Suspect]
     Indication: METASTASES TO BONE
     Dosage: 4 MG, QMO, INTRAVENOUS
     Route: 042
     Dates: start: 20031001
  2. ALDESLEUKIN (ALDESLEUKIN) [Concomitant]
  3. INTERFERON (INTERFERON) [Concomitant]
  4. PRINIVIL [Concomitant]
  5. SYNTHROID [Concomitant]
  6. PEPCID [Concomitant]
  7. ZOLOFT [Concomitant]

REACTIONS (3)
  - ARTHRALGIA [None]
  - DISEASE PROGRESSION [None]
  - LUNG NEOPLASM [None]
